FAERS Safety Report 9651068 (Version 2)
Quarter: 2013Q4

REPORT INFORMATION
  Report Type: Spontaneous
  Country: US (occurrence: US)
  Receive Date: 20131029
  Receipt Date: 20131107
  Transmission Date: 20140711
  Serious: No
  Sender: FDA-Public Use
  Company Number: US-PFIZER INC-2013306000

PATIENT
  Age: 46 Year
  Sex: Male
  Weight: 129 kg

DRUGS (2)
  1. GABAPENTIN [Suspect]
     Indication: DIABETIC NEUROPATHY
     Dosage: 300 MG, DAILY
     Dates: start: 2013, end: 201310
  2. AMITRIPTYLINE [Concomitant]
     Indication: SLEEP DISORDER
     Dosage: 25 MG, DAILY

REACTIONS (3)
  - Blood glucose increased [Unknown]
  - High density lipoprotein decreased [Unknown]
  - Drug ineffective [Unknown]
